FAERS Safety Report 10222842 (Version 1)
Quarter: 2014Q2

REPORT INFORMATION
  Report Type: Spontaneous
  Country: US (occurrence: None)
  Receive Date: 20140606
  Receipt Date: 20140606
  Transmission Date: 20141212
  Serious: No
  Sender: FDA-Public Use
  Company Number: None

PATIENT
  Age: 49 Year
  Sex: Female

DRUGS (1)
  1. STIVARGA [Suspect]
     Indication: COLON CANCER
     Dosage: DAILY FOR 21 DAYS
     Route: 048
     Dates: start: 20140501, end: 20140601

REACTIONS (3)
  - Fatigue [None]
  - Headache [None]
  - Chest pain [None]
